FAERS Safety Report 13019967 (Version 1)
Quarter: 2016Q4

REPORT INFORMATION
  Report Type: Spontaneous
  Country: US (occurrence: US)
  Receive Date: 20161212
  Receipt Date: 20161212
  Transmission Date: 20170207
  Serious: No
  Sender: FDA-Public Use
  Company Number: US-ROCHE-1775930

PATIENT
  Age: 49 Year
  Sex: Female

DRUGS (8)
  1. FOLIC ACID. [Concomitant]
     Active Substance: FOLIC ACID
  2. POTASSIUM CITRATE. [Concomitant]
     Active Substance: POTASSIUM CITRATE
  3. SODIUM BICARBONATE. [Concomitant]
     Active Substance: SODIUM BICARBONATE
  4. LASIX [Concomitant]
     Active Substance: FUROSEMIDE
  5. CIPROFLOXACIN. [Concomitant]
     Active Substance: CIPROFLOXACIN
  6. ZOLPIDEM TARTRATE. [Concomitant]
     Active Substance: ZOLPIDEM TARTRATE
  7. ACTEMRA [Suspect]
     Active Substance: TOCILIZUMAB
     Indication: PULMONARY HYPERTENSION
     Route: 065
  8. ADCIRCA [Concomitant]
     Active Substance: TADALAFIL

REACTIONS (1)
  - Weight increased [Unknown]
